FAERS Safety Report 9901149 (Version 1)
Quarter: 2014Q1

REPORT INFORMATION
  Report Type: Spontaneous
  Country: US (occurrence: US)
  Receive Date: 20140217
  Receipt Date: 20140217
  Transmission Date: 20141002
  Serious: No
  Sender: FDA-Public Use
  Company Number: US-PFIZER INC-2014044824

PATIENT
  Age: 58 Year
  Sex: Female
  Weight: 109.75 kg

DRUGS (4)
  1. CHANTIX [Suspect]
     Indication: SMOKING CESSATION THERAPY
     Dosage: UNK
     Dates: start: 2008, end: 2008
  2. LASIX [Concomitant]
     Indication: RENAL DISORDER
     Dosage: 80 MG, DAILY
  3. AMILORIDE [Concomitant]
     Indication: RENAL DISORDER
     Dosage: 10 MG, DAILY
  4. WARFARIN [Concomitant]
     Dosage: UNK

REACTIONS (2)
  - Vomiting projectile [Unknown]
  - Nausea [Unknown]
